FAERS Safety Report 8959490 (Version 1)
Quarter: 2012Q4

REPORT INFORMATION
  Report Type: 
  Country: US (occurrence: US)
  Receive Date: 20121212
  Receipt Date: 20121212
  Transmission Date: 20130627
  Serious: Yes (Hospitalization, Other)
  Sender: FDA-Public Use
  Company Number: US-AMGEN-USASP2012078205

PATIENT
  Age: 80 Year
  Sex: Male

DRUGS (1)
  1. ENBREL [Suspect]
     Indication: PSORIASIS
     Dosage: 50 mg, qwk
     Dates: start: 20091201

REACTIONS (5)
  - Atrial fibrillation [Unknown]
  - Atrial flutter [Unknown]
  - Staphylococcal infection [Recovered/Resolved]
  - Condition aggravated [Not Recovered/Not Resolved]
  - Inappropriate schedule of drug administration [Recovered/Resolved]
